FAERS Safety Report 10140832 (Version 2)
Quarter: 2015Q1

REPORT INFORMATION
  Report Type: Other
  Country: US (occurrence: US)
  Receive Date: 20140429
  Receipt Date: 20150216
  Transmission Date: 20150720
  Serious: Yes (Hospitalization, Other)
  Sender: FDA-Public Use
  Company Number: US-GSKPPD-2014GSK041336

PATIENT
  Age: 73 Year
  Sex: Male

DRUGS (8)
  1. AVANDIA [Suspect]
     Active Substance: ROSIGLITAZONE MALEATE
     Indication: DIABETES MELLITUS
     Dosage: DATES OF AVANDIA USE COULD NOT BE CONFIRMED IN RECORDS REVIEWED.
     Route: 048
  2. LISINOPRIL. [Concomitant]
     Active Substance: LISINOPRIL
  3. FUROSEMIDE. [Concomitant]
     Active Substance: FUROSEMIDE
  4. DIGOXIN. [Concomitant]
     Active Substance: DIGOXIN
  5. COREG [Concomitant]
     Active Substance: CARVEDILOL
  6. AMIODARONE [Concomitant]
     Active Substance: AMIODARONE
  7. ASPIRIN. [Concomitant]
     Active Substance: ASPIRIN
  8. ISOSORBIDE [Concomitant]
     Active Substance: ISOSORBIDE

REACTIONS (1)
  - Myocardial infarction [Recovered/Resolved]

NARRATIVE: CASE EVENT DATE: 20040730
